FAERS Safety Report 24073739 (Version 1)
Quarter: 2024Q3

REPORT INFORMATION
  Report Type: Spontaneous
  Country: DE (occurrence: DE)
  Receive Date: 20240710
  Receipt Date: 20240710
  Transmission Date: 20241016
  Serious: Yes (Hospitalization, Congenital Anomaly, Other)
  Sender: TEVA
  Company Number: DE-EMBRYOTOX-202301345

PATIENT
  Sex: Female
  Weight: 2.94 kg

DRUGS (3)
  1. METFORMIN [Suspect]
     Active Substance: METFORMIN HYDROCHLORIDE
     Indication: Insulin resistance
     Dosage: 1250 [MG/D ]/ 750MG-500MG-0
     Route: 064
     Dates: start: 20220916, end: 20221230
  2. TRIPTORELIN [Suspect]
     Active Substance: TRIPTORELIN
     Indication: Assisted fertilisation
     Dosage: FOR OVARIAL STIMULATION, DOSAGE UNKNOWN
     Route: 064
  3. PERTUSSIS VACCINE [Concomitant]
     Active Substance: PERTUSSIS VACCINE
     Indication: Prophylaxis
     Route: 064

REACTIONS (2)
  - Oesophageal atresia [Recovered/Resolved]
  - Foetal exposure during pregnancy [Unknown]

NARRATIVE: CASE EVENT DATE: 20230601
